FAERS Safety Report 4384206-6 (Version None)
Quarter: 2004Q2

REPORT INFORMATION
  Report Type: 
  Country: None (occurrence: None)
  Receive Date: 20040614
  Receipt Date: 20040319
  Transmission Date: 20050107
  Serious: Yes (Other)
  Sender: FDA-Public Use
  Company Number: 2004204451US

PATIENT
  Age: 38 Year
  Sex: Male

DRUGS (1)
  1. ZYVOX [Suspect]
     Dosage: 600 MG, BID

REACTIONS (1)
  - NEUROPATHY PERIPHERAL [None]
